FAERS Safety Report 12172874 (Version 5)
Quarter: 2017Q2

REPORT INFORMATION
  Report Type: Spontaneous
  Country: US (occurrence: US)
  Receive Date: 20160311
  Receipt Date: 20170420
  Transmission Date: 20170830
  Serious: Yes (Other)
  Sender: FDA-Public Use
  Company Number: US-PFIZER INC-2016151335

PATIENT
  Age: 73 Year
  Sex: Female

DRUGS (1)
  1. XELJANZ [Suspect]
     Active Substance: TOFACITINIB CITRATE
     Indication: RHEUMATOID ARTHRITIS
     Dosage: 5 MG, 2X/DAY (5MG 2 DAILY)
     Dates: start: 201406

REACTIONS (8)
  - Influenza like illness [Recovered/Resolved]
  - Gastrooesophageal reflux disease [Recovered/Resolved]
  - Malaise [Unknown]
  - Bronchitis [Recovered/Resolved]
  - Urinary tract infection [Recovered/Resolved]
  - Mouth ulceration [Recovered/Resolved]
  - Kidney infection [Unknown]
  - Viral upper respiratory tract infection [Recovered/Resolved]
